FAERS Safety Report 9511278 (Version 1)
Quarter: 2013Q1

REPORT INFORMATION
  Report Type: Spontaneous
  Country: US (occurrence: None)
  Receive Date: 20130305
  Receipt Date: 20130305
  Transmission Date: 20140127
  Serious: Yes (Other)
  Sender: FDA-Public Use
  Company Number: 163-21880-12022680

PATIENT
  Age: 64 Year
  Sex: Female
  Weight: 46.27 kg

DRUGS (3)
  1. REVLIMID [Suspect]
     Indication: MYELODYSPLASTIC SYNDROME
     Dosage: 10 MG, DAILY ON DAYS 1-21, PO
     Route: 048
     Dates: start: 20120102
  2. STOOL SOFTENER (DOCUSATE SODIUM) (UNKNOWN) [Concomitant]
  3. LAXATIVE (SENNOSIDE A+B) (UNKNOWN) (SENNOSIDE A+B) [Concomitant]

REACTIONS (1)
  - Neutrophil count decreased [None]
